FAERS Safety Report 15246168 (Version 1)
Quarter: 2018Q3

REPORT INFORMATION
  Report Type: Spontaneous
  Country: JP (occurrence: JP)
  Receive Date: 20180806
  Receipt Date: 20180806
  Transmission Date: 20181010
  Serious: Yes (Hospitalization, Other)
  Sender: FDA-Public Use
  Company Number: JP-GLAXOSMITHKLINE-JP2018JPN135855

PATIENT
  Age: 4 Decade
  Sex: Male

DRUGS (8)
  1. LAMICTAL [Suspect]
     Active Substance: LAMOTRIGINE
     Indication: BIPOLAR DISORDER
     Dosage: 4100 MG, SINGLE
     Route: 048
  2. SENNOSIDE [Concomitant]
     Active Substance: SENNOSIDES
     Dosage: 12 MG, SINGLE
  3. NITRAZEPAM [Concomitant]
     Active Substance: NITRAZEPAM
     Dosage: 180 MG, SINGLE
  4. ASENAPINE MALEATE [Concomitant]
     Active Substance: ASENAPINE MALEATE
     Dosage: 105 MG, SINGLE
  5. VENLAFAXINE HYDROCHLORIDE. [Concomitant]
     Active Substance: VENLAFAXINE HYDROCHLORIDE
     Dosage: 4200 MG, SINGLE
  6. ESZOPICLONE. [Concomitant]
     Active Substance: ESZOPICLONE
     Dosage: 60 MG, SINGLE
  7. QUETIAPINE FUMARATE. [Concomitant]
     Active Substance: QUETIAPINE FUMARATE
     Dosage: 6000 MG, SINGLE
  8. LORAZEPAM. [Concomitant]
     Active Substance: LORAZEPAM
     Dosage: 41 MG, SINGLE

REACTIONS (6)
  - Hyperreflexia [Unknown]
  - Overdose [Unknown]
  - Altered state of consciousness [Recovering/Resolving]
  - Suicide attempt [Unknown]
  - Toxicity to various agents [Unknown]
  - Blood pressure decreased [Recovering/Resolving]
